FAERS Safety Report 16059407 (Version 3)
Quarter: 2019Q1

REPORT INFORMATION
  Report Type: Spontaneous
  Country: AU (occurrence: AU)
  Receive Date: 20190311
  Receipt Date: 20190311
  Transmission Date: 20190418
  Serious: Yes (Death, Hospitalization, Other)
  Sender: FDA-Public Use
  Company Number: PHHY2019AU053748

PATIENT
  Age: 66 Year
  Sex: Female

DRUGS (3)
  1. MYCOPHENOLATE MOFETIL. [Suspect]
     Active Substance: MYCOPHENOLATE MOFETIL
     Indication: RENAL TRANSPLANT
     Dosage: 750 MG, BID
     Route: 065
  2. PREDNISOLONE. [Suspect]
     Active Substance: PREDNISOLONE
     Indication: RENAL TRANSPLANT
     Dosage: 5 MG, QD
     Route: 065
  3. EVEROLIMUS. [Suspect]
     Active Substance: EVEROLIMUS
     Indication: RENAL TRANSPLANT
     Dosage: 1.25 MG, BID
     Route: 065

REACTIONS (11)
  - Varicella zoster virus infection [Fatal]
  - Thrombocytopenia [Unknown]
  - Abdominal pain [Unknown]
  - Hypotension [Unknown]
  - Confusional state [Unknown]
  - Rash vesicular [Fatal]
  - Tachycardia [Unknown]
  - Agitation [Unknown]
  - Chest pain [Unknown]
  - Somnolence [Unknown]
  - Product use in unapproved indication [Unknown]
